FAERS Safety Report 15960805 (Version 1)
Quarter: 2019Q1

REPORT INFORMATION
  Report Type: Spontaneous
  Country: US (occurrence: US)
  Receive Date: 20190122
  Receipt Date: 20190122
  Transmission Date: 20190417
  Serious: No
  Sender: FDA-Public Use
  Company Number: None

PATIENT
  Age: 67 Year
  Sex: Female

DRUGS (14)
  1. HYDROCO/APAP [Concomitant]
     Active Substance: ACETAMINOPHEN\HYDROCODONE
  2. CALC ACETATE [Concomitant]
     Active Substance: CALCIUM ACETATE
  3. ALLOPURINOL. [Concomitant]
     Active Substance: ALLOPURINOL
  4. SIROLIMUS 0.5 MG TAB [Suspect]
     Active Substance: SIROLIMUS
     Route: 048
     Dates: start: 20180922
  5. FERROUS GLUCOSE [Concomitant]
  6. DIALYVITE [Concomitant]
     Active Substance: ASCORBIC ACID\BIOTIN\CALCIUM PANTOTHENATE\COBALAMIN\FOLIC ACID\NIACINAMIDE\PYRIDOXINE HYDROCHLORIDE\RIBOFLAVIN\THIAMINE MONONITRATE
  7. METOLAZONE. [Concomitant]
     Active Substance: METOLAZONE
  8. HYDRALAZINE [Concomitant]
     Active Substance: HYDRALAZINE HYDROCHLORIDE
  9. FUROSEMIDE. [Concomitant]
     Active Substance: FUROSEMIDE
  10. OMEPRAZOLE. [Concomitant]
     Active Substance: OMEPRAZOLE
  11. WARFARIN [Concomitant]
     Active Substance: WARFARIN
  12. MYCOPHENOLATE 500 MG TAB [Suspect]
     Active Substance: MYCOPHENOLIC ACID
     Route: 048
     Dates: start: 20180922
  13. PREDNISONE. [Concomitant]
     Active Substance: PREDNISONE
  14. METHOCARBAM [Concomitant]
     Active Substance: METHOCARBAMOL

REACTIONS (2)
  - Haemodialysis [None]
  - Renal disorder [None]

NARRATIVE: CASE EVENT DATE: 20181211
